FAERS Safety Report 17192187 (Version 1)
Quarter: 2019Q4

REPORT INFORMATION
  Report Type: Spontaneous
  Country: US (occurrence: US)
  Receive Date: 20191201
  Receipt Date: 20191201
  Transmission Date: 20200122
  Serious: No
  Sender: FDA-Public Use
  Company Number: None

PATIENT
  Age: 29 Year
  Sex: Female
  Weight: 102.06 kg

DRUGS (3)
  1. TROJAN EXTENDED CLIMAX CONTROL CONDOMS [Suspect]
     Active Substance: BENZOCAINE
     Indication: CONTRACEPTION
     Dates: start: 20191128, end: 20191128
  2. LIDOCAINE/PRILOCAINE/DICLOFENAC [Suspect]
     Active Substance: DICLOFENAC\LIDOCAINE\PRILOCAINE
     Indication: BACK PAIN
  3. BENZOCAINE. [Suspect]
     Active Substance: BENZOCAINE

REACTIONS (15)
  - Drug interaction [None]
  - Somnolence [None]
  - Drug hypersensitivity [None]
  - Accidental exposure to product [None]
  - Lip exfoliation [None]
  - Lip disorder [None]
  - Feeding disorder [None]
  - Confusional state [None]
  - Oral pain [None]
  - Product use complaint [None]
  - Dizziness [None]
  - Vomiting [None]
  - Hypoaesthesia oral [None]
  - Tongue discolouration [None]
  - Scab [None]

NARRATIVE: CASE EVENT DATE: 20191128
